FAERS Safety Report 11071588 (Version 1)
Quarter: 2015Q2

REPORT INFORMATION
  Report Type: Spontaneous
  Country: SE (occurrence: SE)
  Receive Date: 20150428
  Receipt Date: 20150428
  Transmission Date: 20150821
  Serious: Yes (Hospitalization)
  Sender: FDA-Public Use
  Company Number: SE-TEVA-557976ISR

PATIENT
  Age: 83 Year
  Sex: Female

DRUGS (2)
  1. ENALAPRIL 5 MG TABLETS [Suspect]
     Active Substance: ENALAPRIL
     Route: 048
  2. AMLODIPINE [Suspect]
     Active Substance: AMLODIPINE BESYLATE
     Route: 048

REACTIONS (1)
  - Skin reaction [Not Recovered/Not Resolved]
